FAERS Safety Report 8533727-0 (Version None)
Quarter: 2012Q3

REPORT INFORMATION
  Report Type: 
  Country: None (occurrence: None)
  Receive Date: 20120724
  Receipt Date: 20120709
  Transmission Date: 20120928
  Serious: Yes (Hospitalization)
  Sender: FDA-Public Use
  Company Number: DE-FRI-1000037119

PATIENT
  Sex: Female
  Weight: 60 kg

DRUGS (5)
  1. MEMANTINE HCL [Suspect]
     Indication: DEMENTIA ALZHEIMER'S TYPE
     Dosage: 20 MG
     Route: 048
     Dates: start: 20120607, end: 20120613
  2. ALENDRONIC ACID [Concomitant]
  3. PANTOPRAZOLE [Concomitant]
     Dosage: 20 MG
  4. DIGOXIN [Concomitant]
     Dosage: 0.2 MG
  5. PROPAFENONE HCL [Concomitant]
     Dosage: 300 MG

REACTIONS (2)
  - ARRHYTHMIA [None]
  - DYSPNOEA [None]
